FAERS Safety Report 12742130 (Version 1)
Quarter: 2016Q3

REPORT INFORMATION
  Report Type: Spontaneous
  Country: US (occurrence: US)
  Receive Date: 20160914
  Receipt Date: 20160914
  Transmission Date: 20161109
  Serious: Yes (Death)
  Sender: FDA-Public Use
  Company Number: None

PATIENT
  Age: 39 Year
  Sex: Female

DRUGS (2)
  1. PILOCARPINE. [Concomitant]
     Active Substance: PILOCARPINE
  2. ADCIRCA [Suspect]
     Active Substance: TADALAFIL
     Indication: PULMONARY ARTERIAL HYPERTENSION
     Route: 048
     Dates: start: 20150327, end: 20160914

REACTIONS (2)
  - Scleroderma [None]
  - Unevaluable event [None]

NARRATIVE: CASE EVENT DATE: 20160705
